FAERS Safety Report 9543002 (Version 2)
Quarter: 2014Q2

REPORT INFORMATION
  Report Type: Spontaneous
  Country: US (occurrence: None)
  Receive Date: 20130524
  Receipt Date: 20130724
  Transmission Date: 20141212
  Serious: No
  Sender: FDA-Public Use
  Company Number: PHEH2012US025242

PATIENT
  Age: 61 Year
  Sex: Female

DRUGS (1)
  1. GILENYA (FINGOLIMOD) CAPSULE, 0.5MG [Suspect]
     Indication: MULTIPLE SCLEROSIS
     Route: 048
     Dates: start: 20110830

REACTIONS (6)
  - Dysstasia [None]
  - Arthropathy [None]
  - Fall [None]
  - Abdominal pain upper [None]
  - Pain in extremity [None]
  - Inappropriate schedule of drug administration [None]
